FAERS Safety Report 7669217-7 (Version None)
Quarter: 2011Q3

REPORT INFORMATION
  Report Type: 
  Country: None (occurrence: None)
  Receive Date: 20110808
  Receipt Date: 20110726
  Transmission Date: 20111222
  Serious: Yes (Hospitalization)
  Sender: FDA-Public Use
  Company Number: PHHY2011FR68417

PATIENT
  Sex: Female

DRUGS (6)
  1. NITROGLYCERIN [Suspect]
     Indication: PAIN IN JAW
     Dosage: UNK UKN, UNK
     Dates: end: 20110202
  2. IMOVANE [Concomitant]
     Dosage: 7.5 MG, QD
  3. ASPIRIN [Concomitant]
     Dosage: 160 MG, QD
  4. LEXOMIL [Concomitant]
     Dosage: 12 MG, QD
     Route: 048
  5. EXELON [Suspect]
     Dosage: 1.5 MG, BID
     Dates: end: 20110202
  6. BETANOL [Suspect]
     Dosage: 2 DF, (OCULAR INSTILLATION TWICE A DAY)
     Dates: end: 20110202

REACTIONS (9)
  - LOSS OF CONSCIOUSNESS [None]
  - MEMORY IMPAIRMENT [None]
  - MALAISE [None]
  - HYPERTENSION [None]
  - CLONUS [None]
  - HYPERHIDROSIS [None]
  - PALLOR [None]
  - DYSKINESIA [None]
  - PAIN IN JAW [None]
